FAERS Safety Report 21726839 (Version 1)
Quarter: 2022Q4

REPORT INFORMATION
  Report Type: Spontaneous
  Country: US (occurrence: None)
  Receive Date: 20221213
  Receipt Date: 20221213
  Transmission Date: 20230112
  Serious: Yes (Other)
  Sender: FDA-Public Use
  Company Number: None

PATIENT
  Age: 43 Year
  Sex: Female
  Weight: 53 kg

DRUGS (2)
  1. .DELTA.8-TETRAHYDROCANNABINOL [Suspect]
     Active Substance: .DELTA.8-TETRAHYDROCANNABINOL
     Indication: Drug therapy
     Dosage: OTHER QUANTITY : 20 GUMMIES;?FREQUENCY : DAILY;?
     Route: 048
  2. VITAMIN B COMPLEX [Concomitant]
     Active Substance: CYANOCOBALAMIN\DEXPANTHENOL\NIACINAMIDE\PYRIDOXINE HYDROCHLORIDE\RIBOFLAVIN 5^-PHOSPHATE SODIUM\THIA

REACTIONS (6)
  - Somnolence [None]
  - Vision blurred [None]
  - Balance disorder [None]
  - Panic attack [None]
  - Anxiety [None]
  - Cognitive disorder [None]

NARRATIVE: CASE EVENT DATE: 20221211
